FAERS Safety Report 8489468-1 (Version None)
Quarter: 2012Q3

REPORT INFORMATION
  Report Type: 
  Country: None (occurrence: None)
  Receive Date: 20120705
  Receipt Date: 20120626
  Transmission Date: 20120928
  Serious: Yes (Other)
  Sender: FDA-Public Use
  Company Number: US-JNJFOC-20120700020

PATIENT
  Age: 50 Year
  Sex: Female
  Weight: 82.56 kg

DRUGS (8)
  1. LISINOPRIL [Concomitant]
     Indication: HYPERTENSION
     Route: 065
  2. ZYRTEC [Suspect]
     Route: 048
  3. LASIX [Concomitant]
     Indication: HYPERTENSION
     Route: 065
  4. LANTUS [Concomitant]
     Indication: DIABETES MELLITUS
     Dosage: 6 UNITS DAILY
     Route: 065
  5. ZYRTEC [Suspect]
     Indication: PRURITUS
     Route: 048
     Dates: start: 20120614
  6. METFORMIN HCL [Concomitant]
     Indication: DIABETES MELLITUS
     Route: 065
  7. WELLBUTRIN SR [Concomitant]
     Indication: SEASONAL AFFECTIVE DISORDER
     Route: 065
  8. LODINE [Concomitant]
     Indication: RHEUMATOID ARTHRITIS
     Route: 065

REACTIONS (5)
  - SUICIDAL IDEATION [None]
  - THINKING ABNORMAL [None]
  - FATIGUE [None]
  - HYPERSOMNIA [None]
  - OFF LABEL USE [None]
